FAERS Safety Report 9370531 (Version 1)
Quarter: 2013Q2

REPORT INFORMATION
  Report Type: Spontaneous
  Country: JP (occurrence: JP)
  Receive Date: 20130626
  Receipt Date: 20130626
  Transmission Date: 20140414
  Serious: Yes (Other)
  Sender: FDA-Public Use
  Company Number: JP-GLAXOSMITHKLINE-B0902224A

PATIENT
  Sex: Male

DRUGS (1)
  1. ALLERMIST [Suspect]
     Indication: NASAL CONGESTION
     Route: 045
     Dates: start: 201302

REACTIONS (1)
  - Oesophageal candidiasis [Unknown]
